FAERS Safety Report 14095305 (Version 1)
Quarter: 2017Q4

REPORT INFORMATION
  Report Type: Report from Study
  Country: GR (occurrence: GR)
  Receive Date: 20171016
  Receipt Date: 20171016
  Transmission Date: 20180321
  Serious: Yes (Death, Hospitalization, Other)
  Sender: FDA-Public Use
  Company Number: GR-TAKEDA-2017MPI004001

PATIENT
  Age: 69 Year
  Sex: Female
  Weight: 54 kg

DRUGS (14)
  1. CYTOXAN [Suspect]
     Active Substance: CYCLOPHOSPHAMIDE
     Dosage: 470 MG, 1/WEEK
     Route: 042
     Dates: start: 20170111, end: 20170308
  2. REVLIMID [Suspect]
     Active Substance: LENALIDOMIDE
     Indication: PLASMA CELL MYELOMA
     Dosage: 10 MG, UNK
     Route: 048
     Dates: start: 20170802, end: 20170901
  3. DARZALEX [Suspect]
     Active Substance: DARATUMUMAB
     Indication: PLASMA CELL MYELOMA
     Dosage: 875 MG, UNK
     Route: 042
     Dates: start: 20170104, end: 20170508
  4. ZOLEDRONIC ACID [Concomitant]
     Active Substance: ZOLEDRONIC ACID
     Dosage: UNK
     Route: 065
  5. EPREX [Concomitant]
     Active Substance: ERYTHROPOIETIN
     Dosage: UNK
     Route: 065
  6. DECADRON [Suspect]
     Active Substance: DEXAMETHASONE
     Dosage: 20 MG, UNK
     Route: 048
     Dates: start: 20170802
  7. CYTOXAN [Suspect]
     Active Substance: CYCLOPHOSPHAMIDE
     Indication: PLASMA CELL MYELOMA
     Dosage: 470 MG, UNK
     Route: 042
     Dates: start: 20160808, end: 20161129
  8. EPOETIN [Concomitant]
     Active Substance: ERYTHROPOIETIN
     Dosage: UNK
  9. DECADRON [Suspect]
     Active Substance: DEXAMETHASONE
     Indication: PLASMA CELL MYELOMA
     Dosage: 24 MG, UNK
     Route: 048
     Dates: start: 20160808, end: 20161129
  10. VELCADE [Suspect]
     Active Substance: BORTEZOMIB
     Indication: PLASMA CELL MYELOMA
     Dosage: 2 MG, UNK
     Route: 058
     Dates: start: 20160808, end: 20161129
  11. VELCADE [Suspect]
     Active Substance: BORTEZOMIB
     Dosage: 2.1 MG, UNK
     Route: 058
     Dates: start: 20170111, end: 20170717
  12. KYPROLIS [Suspect]
     Active Substance: CARFILZOMIB
     Indication: PLASMA CELL MYELOMA
     Dosage: 30 MG, UNK
     Route: 042
     Dates: start: 20170802
  13. FILGRASTIM [Concomitant]
     Active Substance: FILGRASTIM
     Dosage: UNK
  14. DECADRON [Suspect]
     Active Substance: DEXAMETHASONE
     Dosage: 40 MG, UNK
     Route: 065
     Dates: start: 20170104, end: 20170717

REACTIONS (7)
  - Sepsis [Recovered/Resolved]
  - Renal impairment [Not Recovered/Not Resolved]
  - Thrombocytopenia [Not Recovered/Not Resolved]
  - Neutropenia [Recovered/Resolved]
  - Acute kidney injury [Fatal]
  - Respiratory tract infection [Recovered/Resolved]
  - Urinary tract infection [Recovered/Resolved]

NARRATIVE: CASE EVENT DATE: 20170208
